FAERS Safety Report 9890090 (Version 2)
Quarter: 2014Q1

REPORT INFORMATION
  Report Type: Spontaneous
  Country: US (occurrence: US)
  Receive Date: 20140212
  Receipt Date: 20140312
  Transmission Date: 20141002
  Serious: No
  Sender: FDA-Public Use
  Company Number: US-BIOGENIDEC-2014BI011201

PATIENT
  Age: 59 Year
  Sex: Female
  Weight: 46 kg

DRUGS (18)
  1. TECFIDERA [Suspect]
     Indication: PRODUCT USED FOR UNKNOWN INDICATION
     Route: 048
  2. TECFIDERA [Suspect]
     Indication: PRODUCT USED FOR UNKNOWN INDICATION
     Route: 048
     Dates: start: 20131213, end: 20131220
  3. TECFIDERA [Suspect]
     Indication: PRODUCT USED FOR UNKNOWN INDICATION
     Route: 048
     Dates: start: 20131221
  4. TECFIDERA [Suspect]
     Indication: PRODUCT USED FOR UNKNOWN INDICATION
     Route: 048
  5. KLONOPIN [Concomitant]
  6. XENICAL [Concomitant]
  7. DYAZIDE [Concomitant]
  8. EFFEXOR [Concomitant]
  9. PROTONIX [Concomitant]
  10. AMBIEN [Concomitant]
  11. NORVASC [Concomitant]
  12. VICODIN [Concomitant]
  13. RECLAST [Concomitant]
  14. FAMOTIDINE [Concomitant]
  15. KLOR-CON ER [Concomitant]
  16. ADDERALL [Concomitant]
  17. ASA EC [Concomitant]
  18. NORCO [Concomitant]

REACTIONS (9)
  - Dyspnoea [Unknown]
  - Chest pain [Unknown]
  - Dizziness [Unknown]
  - Palpitations [Unknown]
  - Alopecia [Unknown]
  - Prescribed underdose [Not Recovered/Not Resolved]
  - Rash [Unknown]
  - Flushing [Unknown]
  - Abdominal pain upper [Unknown]
